FAERS Safety Report 7904022-5 (Version None)
Quarter: 2011Q4

REPORT INFORMATION
  Report Type: 
  Country: None (occurrence: None)
  Receive Date: 20111109
  Receipt Date: 20111107
  Transmission Date: 20120403
  Serious: Yes (Other)
  Sender: FDA-Public Use
  Company Number: US-TEVA-308380USA

PATIENT
  Age: 8 Month

DRUGS (1)
  1. PROPRANOLOL [Suspect]
     Indication: HAEMANGIOMA
     Dosage: 2.5 MG/KG/DAY UP TO 5 MG/KG/DAY
     Route: 048

REACTIONS (1)
  - HYPERGLYCAEMIC SEIZURE [None]
